FAERS Safety Report 14101060 (Version 1)
Quarter: 2017Q4

REPORT INFORMATION
  Report Type: Spontaneous
  Country: PL (occurrence: PL)
  Receive Date: 20171018
  Receipt Date: 20171018
  Transmission Date: 20180321
  Serious: Yes (Hospitalization, Other)
  Sender: FDA-Public Use
  Company Number: PL-ROCHE-2004833

PATIENT
  Sex: Male

DRUGS (10)
  1. CONTROLOC [Concomitant]
     Active Substance: PANTOPRAZOLE SODIUM
  2. FUROSEMID [Concomitant]
     Active Substance: FUROSEMIDE
  3. CLEXANE [Concomitant]
     Active Substance: ENOXAPARIN SODIUM
  4. ZELBORAF [Suspect]
     Active Substance: VEMURAFENIB
     Indication: MALIGNANT MELANOMA
     Route: 065
     Dates: start: 2014
  5. COTELLIC [Suspect]
     Active Substance: COBIMETINIB
     Indication: MALIGNANT MELANOMA
     Route: 065
     Dates: start: 201707
  6. PROTIFAR [Concomitant]
  7. DEXAMETHASON [Concomitant]
     Active Substance: DEXAMETHASONE
  8. HEPAREGEN [Concomitant]
  9. KALDYUM [Concomitant]
     Active Substance: POTASSIUM CHLORIDE
  10. NEBILET [Concomitant]
     Active Substance: NEBIVOLOL

REACTIONS (19)
  - Cholecystectomy [Unknown]
  - Computerised tomogram abnormal [Unknown]
  - Ascites [Unknown]
  - Pleural effusion [Unknown]
  - Calculus urinary [Unknown]
  - Respiratory failure [Recovered/Resolved]
  - Aortic valve sclerosis [Unknown]
  - Postictal state [Recovered/Resolved]
  - Hepatomegaly [Unknown]
  - Chest X-ray abnormal [Unknown]
  - Ventricular dyssynchrony [Unknown]
  - Asthenia [Unknown]
  - Tachycardia [Unknown]
  - Metastases to liver [Unknown]
  - Mitral valve sclerosis [Unknown]
  - Gamma-glutamyltransferase increased [Unknown]
  - Gait spastic [Unknown]
  - Bacterial test positive [Unknown]
  - Splenectomy [Unknown]

NARRATIVE: CASE EVENT DATE: 2014
